FAERS Safety Report 6420493-8 (Version None)
Quarter: 2009Q4

REPORT INFORMATION
  Report Type: 
  Country: None (occurrence: None)
  Receive Date: 20091021
  Receipt Date: 20090610
  Transmission Date: 20100525
  Serious: No
  Sender: FDA-Public Use
  Company Number: SPV1-2009-01906

PATIENT
  Age: 24 Year
  Sex: Male

DRUGS (6)
  1. VYVANSE [Suspect]
  2. TRAMADOL HCL [Suspect]
  3. OXYCODONE HCL [Suspect]
  4. MORPHINE [Suspect]
  5. HYDROCODONE(HYDROCODONE) [Suspect]
  6. ADDERALL 10 [Suspect]

REACTIONS (3)
  - DRUG DIVERSION [None]
  - NO ADVERSE EVENT [None]
  - THEFT [None]
